FAERS Safety Report 20750042 (Version 2)
Quarter: 2022Q2

REPORT INFORMATION
  Report Type: Spontaneous
  Country: KR (occurrence: KR)
  Receive Date: 20220426
  Receipt Date: 20220505
  Transmission Date: 20220721
  Serious: Yes (Death, Other)
  Sender: FDA-Public Use
  Company Number: KR-BoehringerIngelheim-2022-BI-167318

PATIENT
  Age: 76 Year
  Sex: Male

DRUGS (2)
  1. OFEV [Suspect]
     Active Substance: NINTEDANIB
     Indication: Idiopathic pulmonary fibrosis
     Dosage: ENDDATE: --2021
     Dates: start: 20210209
  2. OFEV [Suspect]
     Active Substance: NINTEDANIB
     Dates: start: 20210927

REACTIONS (1)
  - Idiopathic pulmonary fibrosis [Fatal]
